FAERS Safety Report 5186377-0 (Version None)
Quarter: 2006Q4

REPORT INFORMATION
  Report Type: 
  Country: None (occurrence: None)
  Receive Date: 20061213
  Receipt Date: 20061130
  Transmission Date: 20070319
  Serious: Yes (Hospitalization)
  Sender: FDA-Public Use
  Company Number: 2006137623

PATIENT
  Age: 74 Year
  Sex: Female
  Weight: 112 kg

DRUGS (7)
  1. SUTENT [Suspect]
     Indication: RENAL CELL CARCINOMA STAGE UNSPECIFIED
     Dosage: 50 MG (50 MG, 1 IN 1 D), ORAL
     Route: 048
     Dates: start: 20061003
  2. ATENOLOL [Concomitant]
  3. MAXOLON [Concomitant]
  4. ENALAPRIL MALEATE [Concomitant]
  5. LANSOPRAZOLE [Concomitant]
  6. ANASTROZOLE [Concomitant]
  7. TEMAZEPAM [Concomitant]

REACTIONS (5)
  - ASTHENIA [None]
  - DYSURIA [None]
  - LETHARGY [None]
  - MICTURITION DISORDER [None]
  - URINE ABNORMALITY [None]
